FAERS Safety Report 17904030 (Version 3)
Quarter: 2020Q3

REPORT INFORMATION
  Report Type: Spontaneous
  Country: FR (occurrence: FR)
  Receive Date: 20200616
  Receipt Date: 20200901
  Transmission Date: 20201103
  Serious: Yes (Hospitalization, Congenital Anomaly, Other)
  Sender: FDA-Public Use
  Company Number: FR-BAUSCH-BL-2020-016830

PATIENT
  Age: 15 Year
  Sex: Male
  Weight: 2.63 kg

DRUGS (5)
  1. DIAZEPAM. [Suspect]
     Active Substance: DIAZEPAM
     Indication: PRODUCT USED FOR UNKNOWN INDICATION
     Route: 064
     Dates: start: 200409
  2. POTASSIUM CHLORIDE. [Suspect]
     Active Substance: POTASSIUM CHLORIDE
     Indication: PRODUCT USED FOR UNKNOWN INDICATION
     Route: 064
     Dates: start: 200408
  3. HYDROXYZINE [Suspect]
     Active Substance: HYDROXYZINE HYDROCHLORIDE
     Indication: PRODUCT USED FOR UNKNOWN INDICATION
     Route: 064
     Dates: start: 200408
  4. SALBUTAMOL SULFATE [Suspect]
     Active Substance: ALBUTEROL SULFATE
     Indication: PRODUCT USED FOR UNKNOWN INDICATION
     Route: 064
     Dates: start: 200408
  5. DEPAKINE CHRONO [Suspect]
     Active Substance: VALPROATE SODIUM
     Indication: PRODUCT USED FOR UNKNOWN INDICATION
     Dosage: 1500 MG/3 PER DAY
     Route: 064
     Dates: start: 200408, end: 20041205

REACTIONS (28)
  - Speech disorder developmental [Unknown]
  - Behaviour disorder [Unknown]
  - Respiratory distress [Unknown]
  - Disturbance in social behaviour [Unknown]
  - Anxiety [Unknown]
  - Learning disorder [Unknown]
  - Sensory integrative dysfunction [Unknown]
  - Echolalia [Unknown]
  - Dysgraphia [Unknown]
  - Emotional disorder of childhood [Unknown]
  - Aphasia [Unknown]
  - Communication disorder [Unknown]
  - Dyspnoea [Unknown]
  - Feeding disorder [Unknown]
  - Personal relationship issue [Unknown]
  - Foot deformity [Unknown]
  - Language disorder [Unknown]
  - Neurodevelopmental disorder [Unknown]
  - Oesophagitis [Unknown]
  - Inguinal hernia [Unknown]
  - Myopia [Unknown]
  - Autism spectrum disorder [Unknown]
  - Stereotypy [Unknown]
  - Dysmorphism [Not Recovered/Not Resolved]
  - Premature baby [Unknown]
  - Foetal exposure during pregnancy [Unknown]
  - Visual impairment [Unknown]
  - Sleep disorder [Unknown]
